FAERS Safety Report 17238089 (Version 1)
Quarter: 2020Q1

REPORT INFORMATION
  Report Type: Spontaneous
  Country: US (occurrence: US)
  Receive Date: 20200106
  Receipt Date: 20200106
  Transmission Date: 20200409
  Serious: No
  Sender: FDA-Public Use
  Company Number: US-PACIRA-201900255

PATIENT

DRUGS (2)
  1. EXPAREL [Suspect]
     Active Substance: BUPIVACAINE
     Indication: KNEE OPERATION
     Dosage: 40 ML OF EXPAREL DILUTED WITH 0.25% MARCAINE, 20 ML IN EACH LEG
  2. MARCAINE [Suspect]
     Active Substance: BUPIVACAINE HYDROCHLORIDE
     Indication: KNEE OPERATION

REACTIONS (2)
  - Intentional overdose [Unknown]
  - No adverse event [Unknown]
